FAERS Safety Report 26174245 (Version 1)
Quarter: 2025Q4

REPORT INFORMATION
  Report Type: Spontaneous
  Country: US (occurrence: US)
  Receive Date: 20251218
  Receipt Date: 20251218
  Transmission Date: 20260117
  Serious: No
  Sender: AMGEN
  Company Number: US-AMGEN-USASP2025248652

PATIENT
  Sex: Male

DRUGS (1)
  1. MVASI [Suspect]
     Active Substance: BEVACIZUMAB-AWWB
     Indication: Product used for unknown indication
     Dosage: ORDERED DOSE: 400MG
     Route: 065

REACTIONS (3)
  - Fall [Unknown]
  - Haematoma [Unknown]
  - Discomfort [Unknown]

NARRATIVE: CASE EVENT DATE: 20250801
